FAERS Safety Report 5329157-5 (Version None)
Quarter: 2007Q2

REPORT INFORMATION
  Report Type: 
  Country: None (occurrence: None)
  Receive Date: 20070518
  Receipt Date: 20070508
  Transmission Date: 20071010
  Serious: Yes (Hospitalization, Other)
  Sender: FDA-Public Use
  Company Number: US-PFIZER INC-2007015550

PATIENT
  Sex: Female
  Weight: 60.3 kg

DRUGS (5)
  1. DEPO-PROVERA [Suspect]
     Indication: CONTRACEPTION
     Route: 030
     Dates: start: 20050811, end: 20050811
  2. DEPO-PROVERA [Suspect]
     Route: 030
     Dates: start: 20061010, end: 20061010
  3. DEPO-PROVERA [Suspect]
     Route: 030
     Dates: start: 20061227, end: 20061227
  4. CALCIUM CHLORIDE [Concomitant]
     Route: 048
  5. VITAMIN CAP [Concomitant]
     Route: 048

REACTIONS (4)
  - ABORTION SPONTANEOUS [None]
  - CERVICAL DYSPLASIA [None]
  - DRUG INEFFECTIVE [None]
  - UNINTENDED PREGNANCY [None]
